FAERS Safety Report 12201248 (Version 1)
Quarter: 2016Q1

REPORT INFORMATION
  Report Type: Spontaneous
  Country: US (occurrence: US)
  Receive Date: 20160322
  Receipt Date: 20160322
  Transmission Date: 20160526
  Serious: No
  Sender: FDA-Public Use
  Company Number: US-SA-2015SA071144

PATIENT
  Age: 61 Year
  Sex: Male

DRUGS (3)
  1. NASACORT ALLERGY 24HR [Suspect]
     Active Substance: TRIAMCINOLONE ACETONIDE
     Indication: MULTIPLE ALLERGIES
     Route: 045
     Dates: start: 20150519
  2. FLONASE [Concomitant]
     Active Substance: FLUTICASONE PROPIONATE
     Indication: MULTIPLE ALLERGIES
     Dosage: START DATE: ONE MONTH AGO
     Route: 065
     Dates: end: 20150519
  3. SINGULAIR [Concomitant]
     Active Substance: MONTELUKAST SODIUM
     Indication: ASTHMA
     Dosage: PRODUCT START DATE: UNKNOWN
     Route: 065

REACTIONS (1)
  - Cough [Unknown]
